FAERS Safety Report 20426394 (Version 1)
Quarter: 2022Q1

REPORT INFORMATION
  Report Type: Spontaneous
  Country: DE (occurrence: DE)
  Receive Date: 20220204
  Receipt Date: 20220204
  Transmission Date: 20220424
  Serious: No
  Sender: FDA-Public Use
  Company Number: DE-EXELIXIS-CABO-21042817

PATIENT
  Age: 71 Year
  Sex: Male

DRUGS (2)
  1. CABOMETYX [Suspect]
     Active Substance: CABOZANTINIB S-MALATE
     Indication: Product used for unknown indication
     Dosage: UNK
     Dates: start: 20210528
  2. CABOMETYX [Suspect]
     Active Substance: CABOZANTINIB S-MALATE
     Dosage: 20 MG

REACTIONS (6)
  - Dysstasia [Unknown]
  - Diarrhoea [Unknown]
  - Taste disorder [Unknown]
  - Blood pressure increased [Unknown]
  - Hair colour changes [Unknown]
  - Malignant neoplasm progression [Unknown]
